FAERS Safety Report 16562021 (Version 4)
Quarter: 2019Q3

REPORT INFORMATION
  Report Type: Spontaneous
  Country: US (occurrence: US)
  Receive Date: 20190711
  Receipt Date: 20190826
  Transmission Date: 20191004
  Serious: Yes (Other)
  Sender: FDA-Public Use
  Company Number: US-PFIZER INC-2019291829

PATIENT
  Age: 78 Year
  Sex: Female
  Weight: 68.2 kg

DRUGS (14)
  1. LEVOTHYROXINE. [Concomitant]
     Active Substance: LEVOTHYROXINE
     Dosage: 112 UG (ALSO REPORTED AS MG), UNK
  2. FLORAJEN 3 [Concomitant]
     Active Substance: PROBIOTICS NOS
     Dosage: UNK
  3. VITAMIN E [Concomitant]
     Active Substance: .ALPHA.-TOCOPHEROL
     Dosage: 400 MG, UNK
  4. DUAVEE [Suspect]
     Active Substance: BAZEDOXIFENE ACETATE\ESTROGENS, CONJUGATED
     Indication: MENOPAUSAL SYMPTOMS
     Dosage: 1 DF, 1X/DAY
     Route: 048
     Dates: end: 20190630
  5. DUAVEE [Suspect]
     Active Substance: BAZEDOXIFENE ACETATE\ESTROGENS, CONJUGATED
     Indication: HOT FLUSH
  6. BIOTIN [Concomitant]
     Active Substance: BIOTIN
     Dosage: 10000 UG, UNK
  7. VITAMIN B12 [Concomitant]
     Active Substance: CYANOCOBALAMIN
     Dosage: 1000 UG, UNK
  8. B COMPLEX WITH VITAMIN C [ASCORBIC ACID;CALCIUM PANTOTHENATE;NICOTINAM [Concomitant]
     Dosage: UNK
  9. DUAVEE [Suspect]
     Active Substance: BAZEDOXIFENE ACETATE\ESTROGENS, CONJUGATED
     Indication: AFFECTIVE DISORDER
  10. DUAVEE [Suspect]
     Active Substance: BAZEDOXIFENE ACETATE\ESTROGENS, CONJUGATED
     Indication: COGNITIVE DISORDER
     Dosage: 1 DF, 1X/DAY
     Route: 048
     Dates: start: 20190401
  11. POTASSIUM [Concomitant]
     Active Substance: POTASSIUM
     Dosage: 400 UG, UNK
  12. FOLIC ACID. [Concomitant]
     Active Substance: FOLIC ACID
     Dosage: 800 UG, UNK
  13. FISH OIL OMEGA 3 [Concomitant]
     Active Substance: FISH OIL
     Dosage: 500 MG, UNK
  14. CALCIUM + VITAMIN D3 [Concomitant]
     Active Substance: CALCIUM CARBONATE\CHOLECALCIFEROL
     Dosage: ABSORBABLE CALCIUM 1200MG + D3 500 IU

REACTIONS (9)
  - Nausea [Recovered/Resolved]
  - Hot flush [Recovered/Resolved]
  - Abnormal faeces [Recovered/Resolved]
  - Diarrhoea [Recovered/Resolved]
  - Thrombosis [Unknown]
  - Abdominal pain upper [Unknown]
  - Insomnia [Recovered/Resolved]
  - Fatigue [Recovered/Resolved]
  - Abdominal discomfort [Recovered/Resolved]

NARRATIVE: CASE EVENT DATE: 2019
